FAERS Safety Report 14197820 (Version 2)
Quarter: 2017Q4

REPORT INFORMATION
  Report Type: Report from Study
  Country: GR (occurrence: GR)
  Receive Date: 20171117
  Receipt Date: 20171124
  Transmission Date: 20180321
  Serious: Yes (Death, Life-Threatening, Hospitalization, Disabling, Other)
  Sender: FDA-Public Use
  Company Number: GR-AMGEN-GRCNI2017154388

PATIENT
  Age: 78 Year
  Sex: Female
  Weight: 67.5 kg

DRUGS (16)
  1. PARIET [Concomitant]
     Active Substance: RABEPRAZOLE SODIUM
     Dosage: 20 MG, UNK
     Dates: start: 2014, end: 20171003
  2. LOBIVON [Concomitant]
     Active Substance: NEBIVOLOL HYDROCHLORIDE
     Dosage: 5 MG, UNK
     Dates: start: 2007, end: 20171003
  3. IDEOS [Concomitant]
     Active Substance: CALCIUM CARBONATE\CHOLECALCIFEROL
     Dosage: 500 MG, UNK
     Dates: start: 201703, end: 20171003
  4. JANUMET [Concomitant]
     Active Substance: METFORMIN HYDROCHLORIDE\SITAGLIPTIN PHOSPHATE
     Dosage: 50 MG, UNK
     Dates: start: 2015, end: 20171003
  5. VALTREX [Concomitant]
     Active Substance: VALACYCLOVIR HYDROCHLORIDE
     Dosage: 500 MG, UNK
     Dates: start: 201703, end: 20171003
  6. NOZINAN [Concomitant]
     Active Substance: LEVOMEPROMAZINE
     Dosage: 25 MG, UNK
     Dates: start: 2007, end: 20171003
  7. LANTUS [Concomitant]
     Active Substance: INSULIN GLARGINE
     Dosage: 100 UNK, UNK
     Dates: start: 20150701, end: 20171003
  8. ZOMETA [Concomitant]
     Active Substance: ZOLEDRONIC ACID
     Dosage: 4 MG, UNK
     Dates: start: 201506, end: 201707
  9. DEXAMETHASONE. [Concomitant]
     Active Substance: DEXAMETHASONE
     Indication: PLASMA CELL MYELOMA
     Dosage: 20-40 MG, UNK
     Dates: start: 20170824, end: 20170928
  10. CARFILZOMIB [Suspect]
     Active Substance: CARFILZOMIB
     Indication: PLASMA CELL MYELOMA
     Dosage: 60 MG/M2, UNK
     Route: 042
     Dates: start: 20170824, end: 20170929
  11. MINITRAN [Concomitant]
     Active Substance: NITROGLYCERIN
     Dosage: 10 MG, UNK
     Dates: start: 2007, end: 20171003
  12. NYSTAMYSYN [Concomitant]
     Dosage: 100 UNK, UNK
     Dates: start: 20170824, end: 20171003
  13. TRIATEC PLUS [Concomitant]
     Dosage: 5 MG, UNK
     Dates: start: 2007, end: 20171003
  14. NOVONORM [Concomitant]
     Active Substance: REPAGLINIDE
     Dosage: 1 MG, UNK
     Dates: start: 20170701, end: 20171003
  15. ARANESP [Concomitant]
     Active Substance: DARBEPOETIN ALFA
     Dosage: 150 UNK, UNK
     Dates: start: 201507
  16. LASIX [Concomitant]
     Active Substance: FUROSEMIDE
     Dosage: 20 MG, UNK
     Dates: start: 20170928, end: 20170929

REACTIONS (2)
  - Acute pulmonary oedema [Recovered/Resolved]
  - Cardio-respiratory arrest [Fatal]

NARRATIVE: CASE EVENT DATE: 20170929
